FAERS Safety Report 5729169-3 (Version None)
Quarter: 2008Q2

REPORT INFORMATION
  Report Type: 
  Country: None (occurrence: None)
  Receive Date: 20080506
  Receipt Date: 20080424
  Transmission Date: 20081010
  Serious: Yes (Hospitalization)
  Sender: FDA-Public Use
  Company Number: FR-PFIZER INC-2006054842

PATIENT
  Sex: Male

DRUGS (3)
  1. SU-011,248 [Suspect]
     Route: 048
  2. COZAAR [Concomitant]
     Dosage: TEXT:UNKNOWN-FREQ:UNKNOWN
     Route: 048
  3. DURAGESIC-100 [Concomitant]
     Dosage: TEXT:UNKNOWN-FREQ:UNKNOWN
     Route: 048

REACTIONS (2)
  - HYPOTHERMIA [None]
  - SINUS BRADYCARDIA [None]
